FAERS Safety Report 18376409 (Version 6)
Quarter: 2021Q2

REPORT INFORMATION
  Report Type: Spontaneous
  Country: US (occurrence: US)
  Receive Date: 20201013
  Receipt Date: 20210626
  Transmission Date: 20210717
  Serious: No
  Sender: FDA-Public Use
  Company Number: US-TAKEDA-2020TUS042273

PATIENT
  Age: 63 Year
  Sex: Female
  Weight: 50.79 kg

DRUGS (2)
  1. NINLARO [Suspect]
     Active Substance: IXAZOMIB CITRATE
     Indication: PLASMA CELL MYELOMA IN REMISSION
     Dosage: 3 MILLIGRAM
     Route: 048
  2. NINLARO [Suspect]
     Active Substance: IXAZOMIB CITRATE
     Dosage: 2.3 MILLIGRAM
     Route: 048
     Dates: start: 20180712

REACTIONS (6)
  - Dysuria [Unknown]
  - Chest pain [Unknown]
  - Asthenia [Unknown]
  - Nail discolouration [Unknown]
  - Pain in extremity [Unknown]
  - Balance disorder [Unknown]

NARRATIVE: CASE EVENT DATE: 20210208
